FAERS Safety Report 12084770 (Version 9)
Quarter: 2016Q4

REPORT INFORMATION
  Report Type: Report from Study
  Country: FR (occurrence: FR)
  Receive Date: 20160217
  Receipt Date: 20161205
  Transmission Date: 20170206
  Serious: Yes (Death, Life-Threatening, Hospitalization, Disabling, Other)
  Sender: FDA-Public Use
  Company Number: FR-INCYTE CORPORATION-2015IN006748

PATIENT
  Age: 75 Year
  Sex: Male

DRUGS (3)
  1. JAKAVI [Suspect]
     Active Substance: RUXOLITINIB
     Indication: MYELOFIBROSIS
     Dosage: 5 MG, QD
     Route: 048
     Dates: start: 20140902, end: 20151202
  2. PREVISCAN [Concomitant]
     Active Substance: FLUINDIONE
     Indication: PULMONARY EMBOLISM
     Dosage: UNK
     Route: 065
     Dates: end: 201512
  3. JAKAVI [Suspect]
     Active Substance: RUXOLITINIB
     Indication: MYELOFIBROSIS
     Dosage: 5 MG, BID
     Route: 048
     Dates: start: 20160503, end: 201606

REACTIONS (26)
  - General physical health deterioration [Fatal]
  - Anaemia [Not Recovered/Not Resolved]
  - Lung infection [Recovered/Resolved]
  - Lymphocyte count decreased [Unknown]
  - Fusarium infection [Unknown]
  - Pain [Not Recovered/Not Resolved]
  - Bronchitis [Recovering/Resolving]
  - Cellulitis [Recovered/Resolved]
  - Asthenia [Unknown]
  - Malnutrition [Not Recovered/Not Resolved]
  - Myelofibrosis [Unknown]
  - Decubitus ulcer [Recovering/Resolving]
  - Candida infection [Unknown]
  - Activated partial thromboplastin time prolonged [Unknown]
  - Subdural haematoma [Recovering/Resolving]
  - Geotrichum infection [Unknown]
  - Neutropenia [Unknown]
  - Thrombocytopenia [Unknown]
  - Mucosal inflammation [Recovered/Resolved]
  - Infectious colitis [Recovered/Resolved]
  - International normalised ratio increased [Unknown]
  - Diarrhoea [Recovered/Resolved]
  - Anal fissure [Unknown]
  - Anxiety [Not Recovered/Not Resolved]
  - Campylobacter infection [Unknown]
  - Cardiomegaly [Unknown]

NARRATIVE: CASE EVENT DATE: 20151125
